FAERS Safety Report 7961350-5 (Version None)
Quarter: 2011Q4

REPORT INFORMATION
  Report Type: 
  Country: None (occurrence: None)
  Receive Date: 20111121
  Receipt Date: 20110929
  Transmission Date: 20120403
  Serious: No
  Sender: FDA-Public Use
  Company Number: 1000024343

PATIENT
  Age: 77 Year
  Sex: Female

DRUGS (11)
  1. VIIBRYD [Suspect]
     Indication: DEPRESSION
     Dosage: 10 MG (10 MG, 1 IN 1 D), ORAL
     Route: 048
     Dates: start: 20110801, end: 20110801
  2. VITAMIN D [Concomitant]
  3. MIRALAX (POLYETHYLENE GLUCOL) [Concomitant]
  4. ADDERALL (AMPHETAMINE, DEXTROAMPHETAMINE) (AMPHETAMINE, DEXTROAMPHETAM [Concomitant]
  5. VIIBRYD [Suspect]
     Indication: DEPRESSION
     Dosage: 40 MG (40 MG, 1 IN 1 D), ORAL
     Route: 048
     Dates: start: 20110801
  6. AMLODIPINE [Concomitant]
  7. MULTIVITAMIN [Concomitant]
  8. SIMVASTATIN [Concomitant]
  9. GEODON [Concomitant]
  10. CALCIUM CARBONATE [Concomitant]
  11. OICUVITE (OMEGA-3, LUTEIN) (OMEGA-3, LUTEIN) [Concomitant]

REACTIONS (2)
  - AMNESIA [None]
  - DIZZINESS [None]
